FAERS Safety Report 25518707 (Version 1)
Quarter: 2025Q3

REPORT INFORMATION
  Report Type: Spontaneous
  Country: EU (occurrence: EU)
  Receive Date: 20250704
  Receipt Date: 20250704
  Transmission Date: 20251020
  Serious: Yes (Other)
  Sender: AUROBINDO
  Company Number: EU-PFIZER INC-202300396779

PATIENT
  Age: 53 Year
  Sex: Male

DRUGS (9)
  1. ATORVASTATIN [Suspect]
     Active Substance: ATORVASTATIN
     Indication: Blood cholesterol increased
     Route: 065
     Dates: start: 202011, end: 202103
  2. ATORVASTATIN [Suspect]
     Active Substance: ATORVASTATIN
     Indication: Low density lipoprotein increased
  3. ATORVASTATIN [Suspect]
     Active Substance: ATORVASTATIN
     Indication: Hepatic enzyme increased
  4. ROSUVASTATIN [Suspect]
     Active Substance: ROSUVASTATIN
     Indication: Low density lipoprotein increased
     Route: 065
  5. ROSUVASTATIN [Suspect]
     Active Substance: ROSUVASTATIN
     Indication: Blood cholesterol increased
  6. SIMVASTATIN [Suspect]
     Active Substance: SIMVASTATIN
     Indication: Blood cholesterol increased
     Route: 065
  7. SIMVASTATIN [Suspect]
     Active Substance: SIMVASTATIN
     Indication: Low density lipoprotein increased
  8. LORLATINIB [Suspect]
     Active Substance: LORLATINIB
     Indication: Lung adenocarcinoma
     Route: 065
     Dates: start: 202011
  9. LORLATINIB [Suspect]
     Active Substance: LORLATINIB
     Route: 065

REACTIONS (8)
  - Coronary artery disease [Unknown]
  - Arthralgia [Unknown]
  - Myalgia [Unknown]
  - Blood creatine phosphokinase increased [Unknown]
  - Weight increased [Unknown]
  - Drug intolerance [Unknown]
  - Hyperlipidaemia [Unknown]
  - Glycosylated haemoglobin increased [Unknown]

NARRATIVE: CASE EVENT DATE: 20210301
